FAERS Safety Report 25672833 (Version 1)
Quarter: 2025Q3

REPORT INFORMATION
  Report Type: Spontaneous
  Country: US (occurrence: US)
  Receive Date: 20250812
  Receipt Date: 20250812
  Transmission Date: 20251021
  Serious: No
  Sender: ANI
  Company Number: US-ANIPHARMA-2025-US-005301

PATIENT
  Age: 67 Year
  Sex: Female
  Weight: 81.19 kg

DRUGS (12)
  1. CORTICOTROPIN [Suspect]
     Active Substance: CORTICOTROPIN
     Indication: Rheumatoid arthritis
     Route: 058
     Dates: start: 20250130
  2. LOSARTAN [Concomitant]
     Active Substance: LOSARTAN
  3. SPIRIVA [Concomitant]
     Active Substance: TIOTROPIUM BROMIDE MONOHYDRATE
  4. TIZANIDINE [Concomitant]
     Active Substance: TIZANIDINE
  5. ACTEMRA [Concomitant]
     Active Substance: TOCILIZUMAB
  6. ALBUTEROL [Concomitant]
     Active Substance: ALBUTEROL
  7. ASPIRIN [Concomitant]
     Active Substance: ASPIRIN
  8. CETIRIZINE [Concomitant]
     Active Substance: CETIRIZINE HYDROCHLORIDE
  9. COLACE [Concomitant]
     Active Substance: DOCUSATE SODIUM
  10. FISH OIL [Concomitant]
     Active Substance: FISH OIL
  11. FLONASE [Concomitant]
     Active Substance: FLUTICASONE PROPIONATE
  12. HYDROCODONE [Concomitant]
     Active Substance: HYDROCODONE

REACTIONS (7)
  - Contraindicated product administered [Unknown]
  - Injection site erythema [Recovered/Resolved]
  - Injection site inflammation [Recovered/Resolved]
  - Injection site pruritus [Recovered/Resolved]
  - Musculoskeletal stiffness [Not Recovered/Not Resolved]
  - Peripheral swelling [Not Recovered/Not Resolved]
  - Skin warm [Not Recovered/Not Resolved]

NARRATIVE: CASE EVENT DATE: 20250130
